FAERS Safety Report 19089892 (Version 1)
Quarter: 2021Q2

REPORT INFORMATION
  Report Type: Other
  Country: GB (occurrence: GB)
  Receive Date: 20210404
  Receipt Date: 20210404
  Transmission Date: 20210717
  Serious: Yes (Other)
  Sender: FDA-Public Use
  Company Number: GB-LUPIN PHARMACEUTICALS INC.-2021-03978

PATIENT
  Age: 85 Year
  Sex: Female
  Weight: 75 kg

DRUGS (11)
  1. ALLOPURINOL. [Concomitant]
     Active Substance: ALLOPURINOL
     Indication: PRODUCT USED FOR UNKNOWN INDICATION
     Dosage: 01 DOSAGE FORM, QD
     Route: 065
     Dates: start: 20191230
  2. TRAMADOL. [Concomitant]
     Active Substance: TRAMADOL
     Indication: PRODUCT USED FOR UNKNOWN INDICATION
     Dosage: 03 DOSAGE FORM, PRN
     Route: 065
     Dates: start: 20191230
  3. FUROSEMIDE [FUROSEMIDE SODIUM] [Concomitant]
     Active Substance: FUROSEMIDE SODIUM
     Indication: PRODUCT USED FOR UNKNOWN INDICATION
     Dosage: 01 DOSAGE FORM, QD (EACH MORNING)
     Route: 065
     Dates: start: 20200421
  4. AMLODIPINE [Concomitant]
     Active Substance: AMLODIPINE BESYLATE
     Indication: PRODUCT USED FOR UNKNOWN INDICATION
     Dosage: 01 DOSAGE FORM, QD
     Route: 065
     Dates: start: 20191230
  5. ARTELAC [HYPROMELLOSE] [Concomitant]
     Active Substance: HYPROMELLOSES
     Indication: PRODUCT USED FOR UNKNOWN INDICATION
     Dosage: 2 DROP, PRN (IN BOTH EYES)
     Route: 047
     Dates: start: 20191230
  6. CANDESARTAN. [Concomitant]
     Active Substance: CANDESARTAN
     Indication: PRODUCT USED FOR UNKNOWN INDICATION
     Dosage: 01 DOSAGE FORM, QD
     Route: 065
     Dates: start: 20191230
  7. SIMVASTATIN TABLETS [Suspect]
     Active Substance: SIMVASTATIN
     Indication: PRODUCT USED FOR UNKNOWN INDICATION
     Dosage: 20 MILLIGRAM, QD, AT NIGHT
     Route: 065
     Dates: start: 20200227
  8. ADCAL [CALCIUM CARBONATE] [Concomitant]
     Indication: PRODUCT USED FOR UNKNOWN INDICATION
     Dosage: 04 DOSAGE FORM, QD
     Route: 065
     Dates: start: 20191230
  9. FLUOXETIN [Concomitant]
     Active Substance: FLUOXETINE HYDROCHLORIDE
     Indication: PRODUCT USED FOR UNKNOWN INDICATION
     Dosage: 01 DOSAGE FORM, QD
     Route: 065
     Dates: start: 20191230
  10. LORAZEPAM. [Concomitant]
     Active Substance: LORAZEPAM
     Indication: PRODUCT USED FOR UNKNOWN INDICATION
     Dosage: 01 DOSAGE FORM, QD
     Route: 065
     Dates: start: 20191230
  11. TIMODINE [BENZALKONIUM CHLORIDE;DIMETICONE;HYDROCORTISONE;NYSTATIN] [Concomitant]
     Indication: PRODUCT USED FOR UNKNOWN INDICATION
     Dosage: 03 DOSAGE FORM, QD
     Route: 065
     Dates: start: 20210311

REACTIONS (2)
  - Abdominal discomfort [Unknown]
  - Abdominal pain upper [Recovered/Resolved]

NARRATIVE: CASE EVENT DATE: 20210317
